FAERS Safety Report 4588838-1 (Version None)
Quarter: 2005Q1

REPORT INFORMATION
  Report Type: 
  Country: None (occurrence: None)
  Receive Date: 20050216
  Receipt Date: 20050207
  Transmission Date: 20050727
  Serious: Yes (Hospitalization, Other)
  Sender: FDA-Public Use
  Company Number: 2004075224

PATIENT
  Age: 77 Year
  Sex: Female

DRUGS (9)
  1. LIPITOR [Suspect]
     Indication: BLOOD CHOLESTEROL INCREASED
     Dosage: 20 MG (20 MG, 1 IN 1 D)
     Dates: end: 20040531
  2. LIPITOR [Suspect]
     Indication: HYPERLIPIDAEMIA
     Dosage: 20 MG (20 MG, 1 IN 1 D)
     Dates: end: 20040531
  3. CENTRUM (MINERALS NOS, VITAMINS NOS) [Concomitant]
  4. PANTOPRAZOLE (PANTOPRAZOLE) [Concomitant]
  5. CLOPIDOGREL BISULFATE [Concomitant]
  6. DILTIAZEM HYDROCHLORIDE [Concomitant]
  7. DOCUSATE SODIUM (DOCUSATE SODIUM) [Concomitant]
  8. ALENDRONATE SODIUM [Concomitant]
  9. ASPIRIN [Concomitant]

REACTIONS (5)
  - CORONARY ANGIOPLASTY [None]
  - FALL [None]
  - RHABDOMYOLYSIS [None]
  - SYNCOPE [None]
  - URINARY TRACT INFECTION [None]
